FAERS Safety Report 8535588-2 (Version None)
Quarter: 2012Q3

REPORT INFORMATION
  Report Type: 
  Country: None (occurrence: None)
  Receive Date: 20120725
  Receipt Date: 20120713
  Transmission Date: 20120928
  Serious: Yes (Hospitalization)
  Sender: FDA-Public Use
  Company Number: DE-VERTEX PHARMACEUTICALS INC.-AE-2011-004876

PATIENT
  Age: 6 Decade
  Sex: Male
  Weight: 75 kg

DRUGS (4)
  1. RIBAVIRINE [Concomitant]
     Indication: HEPATITIS C
     Route: 048
     Dates: start: 20110912, end: 20111014
  2. PEGINTERFERON ALFA-2B [Concomitant]
     Indication: HEPATITIS C
     Route: 058
     Dates: start: 20110912
  3. VX-950 [Suspect]
     Indication: HEPATITIS C
     Route: 048
     Dates: start: 20110912, end: 20111203
  4. RIBAVIRINE [Concomitant]
     Route: 048
     Dates: start: 20111014

REACTIONS (1)
  - ANAEMIA [None]
